FAERS Safety Report 25244422 (Version 1)
Quarter: 2025Q2

REPORT INFORMATION
  Report Type: Spontaneous
  Country: CN (occurrence: CN)
  Receive Date: 20250428
  Receipt Date: 20250428
  Transmission Date: 20250717
  Serious: No
  Sender: ALKEM
  Company Number: CN-ALKEM LABORATORIES LIMITED-CN-ALKEM-2025-01273

PATIENT

DRUGS (1)
  1. SIROLIMUS [Suspect]
     Active Substance: SIROLIMUS
     Indication: Lymphatic malformation
     Dosage: 0.8 MILLIGRAM/SQ. METER, BID (EVERY 12 HOURS)
     Route: 065

REACTIONS (1)
  - Pyrexia [Unknown]
